FAERS Safety Report 8809262 (Version 1)
Quarter: 2012Q4

REPORT INFORMATION
  Report Type: 
  Country: FR (occurrence: FR)
  Receive Date: 20120926
  Receipt Date: 20120926
  Transmission Date: 20130627
  Serious: Yes (Other)
  Sender: FDA-Public Use
  Company Number: FR-PFIZER INC-2012232433

PATIENT
  Age: 17 Year
  Sex: Female

DRUGS (4)
  1. AZITHROMYCIN [Suspect]
     Indication: CYSTIC FIBROSIS
  2. METHYLPREDNISONE [Interacting]
     Indication: ACUTE RESPIRATORY DISTRESS SYNDROME
     Dosage: single
     Route: 042
  3. ITRACONAZOLE [Interacting]
     Indication: CYSTIC FIBROSIS
  4. SALBUTAMOL [Concomitant]
     Indication: CYSTIC FIBROSIS

REACTIONS (3)
  - Drug interaction [Unknown]
  - Hypertension [Recovered/Resolved]
  - Bradycardia [Recovered/Resolved]
